FAERS Safety Report 6661443-9 (Version None)
Quarter: 2010Q1

REPORT INFORMATION
  Report Type: 
  Country: None (occurrence: None)
  Receive Date: 20100331
  Receipt Date: 20100324
  Transmission Date: 20100710
  Serious: Yes (Hospitalization, Disabling, Other)
  Sender: FDA-Public Use
  Company Number: US-MERCK-0909USA01535

PATIENT
  Age: 54 Year
  Sex: Female

DRUGS (3)
  1. FOSAMAX [Suspect]
     Indication: PAIN IN JAW
     Route: 048
     Dates: start: 20020101, end: 20070101
  2. FOSAMAX [Suspect]
     Indication: OSTEOPOROSIS
     Route: 048
     Dates: start: 20020101, end: 20070101
  3. ZOMETA [Suspect]
     Indication: BONE CANCER METASTATIC
     Route: 042
     Dates: start: 20020101, end: 20080101

REACTIONS (21)
  - ABDOMINAL PAIN UPPER [None]
  - ATROPHIC GLOSSITIS [None]
  - BONE PAIN [None]
  - CHEST PAIN [None]
  - DEAFNESS [None]
  - DRY SKIN [None]
  - DYSPEPSIA [None]
  - FATIGUE [None]
  - GINGIVAL DISORDER [None]
  - GINGIVITIS [None]
  - IMPAIRED HEALING [None]
  - INCREASED TENDENCY TO BRUISE [None]
  - JOINT SWELLING [None]
  - NEOPLASM MALIGNANT [None]
  - ORAL INFECTION [None]
  - OSTEONECROSIS [None]
  - PERIODONTAL DISEASE [None]
  - POLLAKIURIA [None]
  - SINUSITIS [None]
  - STOMATITIS [None]
  - TOOTHACHE [None]
